FAERS Safety Report 6715936-6 (Version None)
Quarter: 2010Q2

REPORT INFORMATION
  Report Type: 
  Country: None (occurrence: None)
  Receive Date: 20100507
  Receipt Date: 20100428
  Transmission Date: 20101027
  Serious: Yes (Other)
  Sender: FDA-Public Use
  Company Number: CA-AMGEN-KDL408092

PATIENT
  Sex: Female

DRUGS (1)
  1. ENBREL [Suspect]
     Indication: RHEUMATOID ARTHRITIS
     Route: 058
     Dates: start: 20010531

REACTIONS (3)
  - INJECTION SITE PAIN [None]
  - PLACENTA PRAEVIA [None]
  - PLACENTA PRAEVIA HAEMORRHAGE [None]
